FAERS Safety Report 7544641-1 (Version None)
Quarter: 2011Q2

REPORT INFORMATION
  Report Type: 
  Country: None (occurrence: None)
  Receive Date: 20110614
  Receipt Date: 20110602
  Transmission Date: 20111010
  Serious: No
  Sender: FDA-Public Use
  Company Number: US-BIOGENIDEC-2011BI008328

PATIENT
  Sex: Male

DRUGS (2)
  1. TYSABRI [Suspect]
     Route: 042
     Dates: start: 20050101, end: 20050201
  2. TYSABRI [Suspect]
     Indication: MULTIPLE SCLEROSIS
     Route: 042
     Dates: start: 20081017

REACTIONS (10)
  - BALANCE DISORDER [None]
  - MULTIPLE SCLEROSIS [None]
  - FALL [None]
  - ATAXIA [None]
  - DEPRESSION [None]
  - SINUSITIS [None]
  - MUSCLE SPASMS [None]
  - TREMOR [None]
  - GAIT DISTURBANCE [None]
  - ASTHENIA [None]
